FAERS Safety Report 15957194 (Version 1)
Quarter: 2019Q1

REPORT INFORMATION
  Report Type: Spontaneous
  Country: FR (occurrence: FR)
  Receive Date: 20190213
  Receipt Date: 20190213
  Transmission Date: 20190417
  Serious: Yes (Other)
  Sender: FDA-Public Use
  Company Number: FR-BAYER-2019-025337

PATIENT
  Age: 72 Year
  Sex: Male

DRUGS (3)
  1. STIVARGA [Suspect]
     Active Substance: REGORAFENIB
     Indication: COLON CANCER METASTATIC
     Dosage: 80 MG, QD
     Dates: start: 201810
  2. STIVARGA [Suspect]
     Active Substance: REGORAFENIB
     Indication: COLON CANCER METASTATIC
     Dosage: 120 MG, QD
     Dates: start: 2018, end: 201901
  3. STIVARGA [Suspect]
     Active Substance: REGORAFENIB
     Indication: COLON CANCER METASTATIC
     Dosage: 160 MG, QD

REACTIONS (5)
  - Off label use [None]
  - Palmar-plantar erythrodysaesthesia syndrome [None]
  - Epilepsy [None]
  - Metastases to peritoneum [None]
  - Diarrhoea [None]

NARRATIVE: CASE EVENT DATE: 2018
